FAERS Safety Report 21979221 (Version 1)
Quarter: 2023Q1

REPORT INFORMATION
  Report Type: Report from Study
  Country: US (occurrence: None)
  Receive Date: 20230210
  Receipt Date: 20230210
  Transmission Date: 20230417
  Serious: Yes (Other)
  Sender: FDA-Public Use
  Company Number: 2023A029662

PATIENT
  Age: 20277 Day
  Sex: Female

DRUGS (1)
  1. TAGRISSO [Suspect]
     Active Substance: OSIMERTINIB
     Route: 048

REACTIONS (6)
  - Skin swelling [Unknown]
  - Skin haemorrhage [Unknown]
  - Skin discharge [Unknown]
  - Nail bed infection [Unknown]
  - Paraesthesia [Unknown]
  - Dry skin [Unknown]

NARRATIVE: CASE EVENT DATE: 20230128
